FAERS Safety Report 6743318-X (Version None)
Quarter: 2010Q2

REPORT INFORMATION
  Report Type: 
  Country: None (occurrence: None)
  Receive Date: 20100525
  Receipt Date: 20100517
  Transmission Date: 20101027
  Serious: Yes (Life-Threatening)
  Sender: FDA-Public Use
  Company Number: 2009US004281

PATIENT
  Age: 16 Year
  Sex: Female
  Weight: 48 kg

DRUGS (16)
  1. AMBISOME [Suspect]
     Indication: CANDIDIASIS
     Dosage: 125 MG, UID/QD, IV NOS; 230 MG, UID/QD, IV NOS
     Route: 042
     Dates: start: 20091128, end: 20091128
  2. AMBISOME [Suspect]
     Indication: SEPSIS
     Dosage: 125 MG, UID/QD, IV NOS; 230 MG, UID/QD, IV NOS
     Route: 042
     Dates: start: 20091128, end: 20091128
  3. AMBISOME [Suspect]
     Indication: CANDIDIASIS
     Dosage: 125 MG, UID/QD, IV NOS; 230 MG, UID/QD, IV NOS
     Route: 042
     Dates: start: 20091129, end: 20091130
  4. AMBISOME [Suspect]
     Indication: SEPSIS
     Dosage: 125 MG, UID/QD, IV NOS; 230 MG, UID/QD, IV NOS
     Route: 042
     Dates: start: 20091129, end: 20091130
  5. CYTARABINE [Concomitant]
  6. NOVANTRON (MITOXANTRONE HYDROCHLORIDE) INJECTION [Concomitant]
  7. CYCLOPHOSPHAMIDE [Concomitant]
  8. CISPLATIN [Concomitant]
  9. CARBENIN (BETAMIPRON, PANIPENEM) FORMULATION UNKNOWN [Concomitant]
  10. AMIKACIN (AMIKACIN) FORMULATION UNKNOWN [Concomitant]
  11. MAXIPIME (CEFEPIME HYDROCHLORIDE) FORMULATION UNKNOWN [Concomitant]
  12. ZOCIN (AZITHROMYCIN) FORMULATION UNKNOWN [Concomitant]
  13. FUNGUARD (MICAFUNGIN SODIUM) FORMULATION UNKNOWN [Concomitant]
  14. VENOGLOBULIN-IH (IMMUNOGLOBULIN HUMAN NORMAL) FORMULATION UNKNOWN [Concomitant]
  15. NEUTROGIN (LENOGRASTIM) FORMULATION UNKNOWN [Concomitant]
  16. POTASSIUM (POTASSIUM) FORMULATION UNKNOWN [Concomitant]

REACTIONS (13)
  - BLOOD PRESSURE DECREASED [None]
  - BONE MARROW FAILURE [None]
  - CARDIAC FAILURE ACUTE [None]
  - HISTIOCYTOSIS HAEMATOPHAGIC [None]
  - HYPERTENSION [None]
  - MUSCLE MASS [None]
  - PANCREATITIS ACUTE [None]
  - POLYNEUROPATHY [None]
  - RENAL FAILURE ACUTE [None]
  - RESPIRATORY DISORDER [None]
  - RHABDOMYOLYSIS [None]
  - SEPTIC ENCEPHALOPATHY [None]
  - TACHYCARDIA [None]
